FAERS Safety Report 10094941 (Version 1)
Quarter: 2014Q2

REPORT INFORMATION
  Report Type: Spontaneous
  Country: BR (occurrence: BR)
  Receive Date: 20140422
  Receipt Date: 20140422
  Transmission Date: 20141212
  Serious: Yes (Hospitalization)
  Sender: FDA-Public Use
  Company Number: BR-SA-2014SA046107

PATIENT
  Age: 64 Year
  Sex: Female
  Weight: 83 kg

DRUGS (8)
  1. LANTUS [Suspect]
     Indication: TYPE 1 DIABETES MELLITUS
     Route: 058
     Dates: start: 2013
  2. DEVICE NOS [Concomitant]
     Indication: DEVICE THERAPY
  3. LAMICTAL [Concomitant]
     Indication: CONVULSION
     Route: 048
  4. CARVEDILOL [Concomitant]
     Route: 048
  5. SIMVASTATIN [Concomitant]
     Indication: CARDIAC DISORDER
     Route: 048
  6. ASPIRIN [Concomitant]
     Indication: CARDIAC DISORDER
     Route: 048
  7. HYDRALAZINE [Concomitant]
     Indication: CARDIAC DISORDER
     Route: 048
  8. MONOCORDIL [Concomitant]
     Indication: CARDIAC DISORDER
     Route: 048

REACTIONS (4)
  - Arrhythmia [Recovered/Resolved]
  - Palpitations [Recovered/Resolved]
  - Tremor [Recovered/Resolved]
  - Presyncope [Recovered/Resolved]
